FAERS Safety Report 5233977-5 (Version None)
Quarter: 2007Q1

REPORT INFORMATION
  Report Type: 
  Country: None (occurrence: None)
  Receive Date: 20070208
  Receipt Date: 20070102
  Transmission Date: 20070707
  Serious: Yes (Hospitalization, Other)
  Sender: FDA-Public Use
  Company Number: US-PFIZER INC-2006079154

PATIENT
  Sex: Female
  Weight: 84.4 kg

DRUGS (13)
  1. BEXTRA [Suspect]
     Indication: ARTHRITIS
     Route: 048
  2. LISINOPRIL [Concomitant]
     Route: 048
  3. MAXZIDE [Concomitant]
     Route: 048
  4. ULTRAM [Concomitant]
     Route: 048
  5. GLUCOPHAGE [Concomitant]
     Route: 048
  6. ZYPREXA [Concomitant]
     Route: 048
  7. RESTORIL [Concomitant]
     Route: 048
  8. POTASSIUM ACETATE [Concomitant]
     Route: 048
  9. METFORMIN HCL [Concomitant]
     Route: 048
  10. ASPIRIN [Concomitant]
     Route: 048
  11. PARACETAMOL [Concomitant]
  12. METOPROLOL [Concomitant]
     Route: 048
  13. HUMULIN R [Concomitant]

REACTIONS (1)
  - STEVENS-JOHNSON SYNDROME [None]
